FAERS Safety Report 17363708 (Version 2)
Quarter: 2020Q1

REPORT INFORMATION
  Report Type: Report from Study
  Country: JP (occurrence: JP)
  Receive Date: 20200203
  Receipt Date: 20200217
  Transmission Date: 20200409
  Serious: Yes (Other)
  Sender: FDA-Public Use
  Company Number: JP-ALEXION PHARMACEUTICALS INC.-A202000188

PATIENT

DRUGS (1)
  1. SOLIRIS [Suspect]
     Active Substance: ECULIZUMAB
     Indication: NEUROMYELITIS OPTICA SPECTRUM DISORDER
     Dosage: 900 MG, UNK
     Route: 042
     Dates: start: 20191224

REACTIONS (3)
  - Cholangitis [Recovering/Resolving]
  - Drug eruption [Recovering/Resolving]
  - Bile duct obstruction [Recovering/Resolving]

NARRATIVE: CASE EVENT DATE: 20191228
